FAERS Safety Report 15978633 (Version 1)
Quarter: 2019Q1

REPORT INFORMATION
  Report Type: Spontaneous
  Country: US (occurrence: US)
  Receive Date: 20190219
  Receipt Date: 20190219
  Transmission Date: 20190418
  Serious: No
  Sender: FDA-Public Use
  Company Number: US-009507513-1901USA008786

PATIENT
  Age: 20 Year
  Sex: Female
  Weight: 68.03 kg

DRUGS (1)
  1. NEXPLANON [Suspect]
     Active Substance: ETONOGESTREL
     Indication: CONTRACEPTION
     Dosage: 3 YEARS
     Route: 059
     Dates: start: 20170817

REACTIONS (5)
  - Mood swings [Not Recovered/Not Resolved]
  - Hormone level abnormal [Not Recovered/Not Resolved]
  - Nausea [Not Recovered/Not Resolved]
  - Adverse event [Not Recovered/Not Resolved]
  - Oligomenorrhoea [Not Recovered/Not Resolved]

NARRATIVE: CASE EVENT DATE: 20170817
